FAERS Safety Report 8757628 (Version 1)
Quarter: 2012Q4

REPORT INFORMATION
  Report Type: 
  Country: GB (occurrence: GB)
  Receive Date: 20120828
  Receipt Date: 20120828
  Transmission Date: 20130627
  Serious: Yes (Other)
  Sender: FDA-Public Use
  Company Number: PHHY2012GB073737

PATIENT
  Age: 53 Year
  Sex: Male
  Weight: 72 kg

DRUGS (8)
  1. RAMIPRIL [Suspect]
     Dosage: 2.5 mg, UNK
  2. ASPIRIN [Concomitant]
     Dosage: 75 mg, UNK
     Route: 048
     Dates: start: 20120718
  3. ATORVASTATIN [Concomitant]
     Dosage: 10 mg, UNK
     Route: 048
  4. BISOPROLOL [Concomitant]
     Dosage: 2.5 mg, UNK
     Route: 048
     Dates: start: 20120718
  5. CETIRIZINE [Concomitant]
     Dosage: 10 mg, UNK
     Route: 048
     Dates: start: 20120718
  6. PERINDOPRIL [Concomitant]
  7. PROCHLORPERAZINE MALEATE [Concomitant]
     Dosage: 5 mg, UNK
     Dates: start: 20120723
  8. TERBINAFINE HYDROCHLORIDE [Concomitant]
     Dosage: 1 DF, BID
     Route: 061
     Dates: start: 20120718

REACTIONS (7)
  - Angina unstable [Unknown]
  - Hypoaesthesia [Unknown]
  - Vertigo [Unknown]
  - Dizziness [Unknown]
  - Chest pain [Unknown]
  - Neck pain [Unknown]
  - Musculoskeletal pain [Unknown]
